FAERS Safety Report 20597477 (Version 4)
Quarter: 2023Q1

REPORT INFORMATION
  Report Type: Spontaneous
  Country: US (occurrence: US)
  Receive Date: 20220315
  Receipt Date: 20230210
  Transmission Date: 20230418
  Serious: Yes (Other)
  Sender: FDA-Public Use
  Company Number: US-PFIZER INC-2021171776

PATIENT
  Age: 82 Year
  Sex: Female

DRUGS (1)
  1. XELJANZ [Suspect]
     Active Substance: TOFACITINIB CITRATE
     Dosage: 5 MG, 1X/DAY

REACTIONS (6)
  - Dementia [Not Recovered/Not Resolved]
  - Dandruff [Unknown]
  - Pruritus [Unknown]
  - Hyperhidrosis [Unknown]
  - Sleep disorder [Unknown]
  - Off label use [Unknown]
